FAERS Safety Report 10516083 (Version 1)
Quarter: 2014Q3

REPORT INFORMATION
  Report Type: Spontaneous
  Country: US (occurrence: None)
  Receive Date: 20140929
  Receipt Date: 20140929
  Transmission Date: 20150326
  Serious: Yes (Other)
  Sender: FDA-Public Use
  Company Number: 1207USA006704

PATIENT
  Sex: Female

DRUGS (5)
  1. NEURONTIN [Concomitant]
     Active Substance: GABAPENTIN
  2. CLARITIN [Suspect]
     Active Substance: LORATADINE
     Indication: PRODUCT USED FOR UNKNOWN INDICATION
     Dosage: UNK. UNKNOWN , ORAL
  3. DEPAKOTE (DIVALPROEX SODIUM) [Concomitant]
  4. SEROQUEL XR [Concomitant]
     Active Substance: QUETIAPINE FUMARATE
  5. CELEXA [Concomitant]
     Active Substance: CITALOPRAM HYDROBROMIDE

REACTIONS (1)
  - Hypersensitivity [None]
